FAERS Safety Report 7305495-1 (Version None)
Quarter: 2011Q1

REPORT INFORMATION
  Report Type: 
  Country: None (occurrence: None)
  Receive Date: 20110222
  Receipt Date: 20101203
  Transmission Date: 20110831
  Serious: No
  Sender: FDA-Public Use
  Company Number: US-US-EMD SERONO, INC.-232265J09USA

PATIENT
  Sex: Female

DRUGS (8)
  1. LEXAPRO [Concomitant]
     Indication: DEPRESSION
     Route: 065
  2. MAXALT [Concomitant]
     Indication: MIGRAINE
     Route: 065
  3. REBIF [Suspect]
     Indication: MULTIPLE SCLEROSIS
     Route: 058
     Dates: start: 20051223
  4. FROVA [Concomitant]
     Indication: MIGRAINE
     Route: 065
  5. CYMBALTA [Concomitant]
     Indication: DEPRESSION
     Route: 065
  6. VALIUM [Concomitant]
     Indication: DEPRESSION
     Route: 065
  7. PROVIGIL [Concomitant]
     Indication: FATIGUE
     Route: 065
  8. RELPAX [Concomitant]
     Indication: MIGRAINE
     Route: 065

REACTIONS (1)
  - NO ADVERSE EVENT [None]
